FAERS Safety Report 8185509-X (Version None)
Quarter: 2012Q1

REPORT INFORMATION
  Report Type: 
  Country: None (occurrence: None)
  Receive Date: 20120305
  Receipt Date: 20120222
  Transmission Date: 20120608
  Serious: Yes (Hospitalization, Congenital Anomaly, Other)
  Sender: FDA-Public Use
  Company Number: DE-PFIZER INC-2012047009

PATIENT
  Age: 28 Day
  Sex: Female
  Weight: 2.85 kg

DRUGS (7)
  1. TRIMIPRAMINE MALEATE [Suspect]
     Indication: DEPRESSION
     Dosage: 400 MG, 1X/DAY
     Route: 064
     Dates: end: 20100901
  2. LORAZEPAM [Suspect]
     Dosage: UNK, DAILY
     Route: 064
     Dates: end: 20100601
  3. RISPERDAL [Suspect]
     Indication: POST-TRAUMATIC STRESS DISORDER
     Dosage: 6 MG, 1X/DAY
     Route: 064
     Dates: end: 20100701
  4. VENLAFAXINE HYDROCHLORIDE [Suspect]
     Indication: ANXIETY DISORDER
     Dosage: 150 MG, 1X/DAY
     Route: 064
     Dates: end: 20100701
  5. FOLIC ACID [Concomitant]
     Indication: PROPHYLAXIS OF NEURAL TUBE DEFECT
     Dosage: UNK
     Route: 064
     Dates: start: 20100101
  6. LAMOTRIGINE [Suspect]
     Indication: DEPRESSION
     Dosage: 200 MG, 1X/DAY
     Route: 064
     Dates: end: 20100101
  7. LORAZEPAM [Suspect]
     Indication: BORDERLINE PERSONALITY DISORDER
     Dosage: BETWEEN 2.5 MG/D AND 8 MG/D, AS NEEDED
     Route: 064
     Dates: end: 20100101

REACTIONS (6)
  - COARCTATION OF THE AORTA [None]
  - VENTRICULAR SEPTAL DEFECT [None]
  - PATENT DUCTUS ARTERIOSUS [None]
  - MATERNAL EXPOSURE TIMING UNSPECIFIED [None]
  - ATRIAL SEPTAL DEFECT [None]
  - PARACHUTE MITRAL VALVE [None]
